FAERS Safety Report 13781402 (Version 2)
Quarter: 2017Q3

REPORT INFORMATION
  Report Type: Spontaneous
  Country: DE (occurrence: DE)
  Receive Date: 20170724
  Receipt Date: 20170824
  Transmission Date: 20171127
  Serious: Yes (Death, Hospitalization)
  Sender: FDA-Public Use
  Company Number: DE-ELI_LILLY_AND_COMPANY-DE201707008758

PATIENT
  Age: 79 Year
  Sex: Male

DRUGS (4)
  1. ONDANSETRON [Concomitant]
     Active Substance: ONDANSETRON
     Indication: PREMEDICATION
     Dosage: 8 MG, UNKNOWN
     Route: 041
     Dates: start: 20170621
  2. TAVEGIL                            /00137201/ [Concomitant]
     Active Substance: CLEMASTINE FUMARATE
     Indication: PREMEDICATION
     Dosage: 1 DF, UNKNOWN
     Route: 042
     Dates: start: 20170621
  3. DEXAMETHASON                       /00016001/ [Concomitant]
     Active Substance: DEXAMETHASONE
     Indication: PREMEDICATION
     Dosage: 8 MG, UNKNOWN
     Route: 041
     Dates: start: 20170621
  4. ERBITUX [Suspect]
     Active Substance: CETUXIMAB
     Indication: COLON CANCER
     Dosage: 50 MG, UNKNOWN
     Route: 041
     Dates: start: 20170621

REACTIONS (4)
  - Hypotension [Fatal]
  - Infusion related reaction [Fatal]
  - Cyanosis [Fatal]
  - Cold sweat [Fatal]

NARRATIVE: CASE EVENT DATE: 20170621
